FAERS Safety Report 9529273 (Version 1)
Quarter: 2013Q2

REPORT INFORMATION
  Report Type: Spontaneous
  Country: US (occurrence: None)
  Receive Date: 20130401
  Receipt Date: 20130401
  Transmission Date: 20140414
  Serious: Yes (Hospitalization)
  Sender: FDA-Public Use
  Company Number: PHEH2012US017000

PATIENT
  Age: 78 Year
  Sex: Male

DRUGS (1)
  1. EXELON PATCH [Suspect]
     Route: 062

REACTIONS (2)
  - Rash [None]
  - Seborrhoeic dermatitis [None]
